FAERS Safety Report 25611958 (Version 1)
Quarter: 2025Q3

REPORT INFORMATION
  Report Type: Other
  Country: JP (occurrence: JP)
  Receive Date: 20250728
  Receipt Date: 20250728
  Transmission Date: 20251020
  Serious: Yes (Hospitalization, Other)
  Sender: Kanchan Healthcare
  Company Number: JP-Kanchan Healthcare INC-2181345

PATIENT
  Age: 49 Year
  Sex: Female

DRUGS (5)
  1. DEXAMETHASONE [Suspect]
     Active Substance: DEXAMETHASONE
     Indication: Hypersensitivity
  2. PEGFILGRASTIM [Suspect]
     Active Substance: PEGFILGRASTIM
  3. PACLITAXEL [Concomitant]
     Active Substance: PACLITAXEL
  4. CYCLOPHOSPHAMIDE [Concomitant]
     Active Substance: CYCLOPHOSPHAMIDE
  5. Eirenicon [Concomitant]

REACTIONS (1)
  - Acute kidney injury [Unknown]
